FAERS Safety Report 10680750 (Version 4)
Quarter: 2016Q4

REPORT INFORMATION
  Report Type: Spontaneous
  Country: US (occurrence: US)
  Receive Date: 20141229
  Receipt Date: 20161219
  Transmission Date: 20170206
  Serious: Yes (Hospitalization)
  Sender: FDA-Public Use
  Company Number: US-SANOFI-AVENTIS-2012SA028662

PATIENT
  Age: 88 Year
  Sex: Female
  Weight: 56.24 kg

DRUGS (31)
  1. PLAVIX [Suspect]
     Active Substance: CLOPIDOGREL BISULFATE
     Indication: ARTERIAL OCCLUSIVE DISEASE
     Route: 048
     Dates: start: 20091109, end: 20100831
  2. ASPIRIN. [Concomitant]
     Active Substance: ASPIRIN
  3. PENICILLIN [Concomitant]
     Active Substance: PENICILLIN
  4. HYDROCODONE [Concomitant]
     Active Substance: HYDROCODONE
  5. ECOTRIN [Concomitant]
     Active Substance: ASPIRIN
     Route: 048
  6. PLAVIX [Suspect]
     Active Substance: CLOPIDOGREL BISULFATE
     Indication: HYPERTENSION
     Route: 048
     Dates: start: 20091109, end: 20100831
  7. LORAZEPAM. [Concomitant]
     Active Substance: LORAZEPAM
     Route: 048
  8. METHYLDOPA. [Concomitant]
     Active Substance: METHYLDOPA
  9. FOSAMAX [Concomitant]
     Active Substance: ALENDRONATE SODIUM
  10. MELOXICAM. [Concomitant]
     Active Substance: MELOXICAM
  11. LISINOPRIL. [Concomitant]
     Active Substance: LISINOPRIL
     Dosage: STRENGTH: 20
     Route: 048
  12. RANITIDINE. [Concomitant]
     Active Substance: RANITIDINE
     Route: 048
  13. SIMVASTATIN. [Concomitant]
     Active Substance: SIMVASTATIN
     Dosage: STRENGTH: 20MG
     Route: 048
  14. ACETAMINOPHEN. [Concomitant]
     Active Substance: ACETAMINOPHEN
  15. TRIMETHOPRIM/SULFAMETHOXAZOLE [Concomitant]
  16. LIDODERM [Concomitant]
     Active Substance: LIDOCAINE
     Dosage: 5% PATCH
  17. DORZOLAMIDE [Concomitant]
     Active Substance: DORZOLAMIDE
     Indication: GLAUCOMA
  18. LUMIGAN [Concomitant]
     Active Substance: BIMATOPROST
     Dosage: OPTHALAMIC
  19. METOPROLOL. [Concomitant]
     Active Substance: METOPROLOL
     Dosage: STRENGTH: 50MG
     Route: 048
  20. NORVASC [Concomitant]
     Active Substance: AMLODIPINE BESYLATE
     Dosage: STRENGTH: 10MG
     Route: 048
  21. FERROUS SULFATE. [Concomitant]
     Active Substance: FERROUS SULFATE
     Route: 065
  22. WARFARIN [Concomitant]
     Active Substance: WARFARIN
     Dates: start: 2006, end: 2007
  23. CIPROFLOXACIN. [Concomitant]
     Active Substance: CIPROFLOXACIN
  24. PLAVIX [Suspect]
     Active Substance: CLOPIDOGREL BISULFATE
     Indication: CORONARY ARTERY DISEASE
     Route: 048
     Dates: start: 20091109, end: 20100831
  25. TEKTURNA [Concomitant]
     Active Substance: ALISKIREN HEMIFUMARATE
     Route: 065
  26. AMLODIPINE [Concomitant]
     Active Substance: AMLODIPINE BESYLATE
     Route: 048
  27. TOPROL XL [Concomitant]
     Active Substance: METOPROLOL SUCCINATE
     Route: 048
  28. AMOXICILLIN. [Concomitant]
     Active Substance: AMOXICILLIN
  29. AZITHROMYCIN ANHYDROUS. [Concomitant]
     Active Substance: AZITHROMYCIN ANHYDROUS
  30. HYDROCHLOROTHIAZIDE. [Concomitant]
     Active Substance: HYDROCHLOROTHIAZIDE
     Route: 048
  31. ALLOPURINOL. [Concomitant]
     Active Substance: ALLOPURINOL

REACTIONS (5)
  - Rectal haemorrhage [Unknown]
  - Gastrointestinal haemorrhage [Unknown]
  - Gastritis [Unknown]
  - Ill-defined disorder [Unknown]
  - Anaemia [Unknown]

NARRATIVE: CASE EVENT DATE: 20100210
